FAERS Safety Report 13114053 (Version 2)
Quarter: 2017Q1

REPORT INFORMATION
  Report Type: Spontaneous
  Country: US (occurrence: US)
  Receive Date: 20170113
  Receipt Date: 20170113
  Transmission Date: 20170428
  Serious: Yes (Other)
  Sender: FDA-Public Use
  Company Number: US-SA-2017SA005121

PATIENT
  Age: 88 Year
  Sex: Female

DRUGS (1)
  1. NASACORT ALLERGY 24HR [Suspect]
     Active Substance: TRIAMCINOLONE ACETONIDE
     Indication: SEASONAL ALLERGY
     Dosage: TAKEN FROM: 1 YEAR AGO?THE DOSE IS 1 SPRAY EACH NARE
     Route: 045
     Dates: end: 20170109

REACTIONS (2)
  - Macular degeneration [Unknown]
  - Cataract [Unknown]
